FAERS Safety Report 17769576 (Version 1)
Quarter: 2020Q2

REPORT INFORMATION
  Report Type: Spontaneous
  Country: IT (occurrence: IT)
  Receive Date: 20200512
  Receipt Date: 20200512
  Transmission Date: 20200714
  Serious: No
  Sender: FDA-Public Use
  Company Number: IT-LUPIN PHARMACEUTICALS INC.-2020-01207

PATIENT
  Age: 36 Year
  Sex: Male

DRUGS (2)
  1. METHYLTESTOSTERONE. [Suspect]
     Active Substance: METHYLTESTOSTERONE
     Indication: PRODUCT USED FOR UNKNOWN INDICATION
     Dosage: 10 MILLIGRAM (THREE TIMES PER WEEK FOR 10 WEEKS. TAKING SUCH DRUGS CYCLES SINCE 4 YEARS)
     Route: 065
  2. TESTOSTERONE. [Suspect]
     Active Substance: TESTOSTERONE
     Indication: PRODUCT USED FOR UNKNOWN INDICATION
     Dosage: 250 MILLIGRAM (TWICE PER WEEK FOR 10 WEEKS. TAKING SUCH DRUGS CYCLES SINCE 4 YEARS)
     Route: 065

REACTIONS (2)
  - Chloasma [Unknown]
  - Butterfly rash [Unknown]
